FAERS Safety Report 8775068 (Version 2)
Quarter: 2012Q4

REPORT INFORMATION
  Report Type: 
  Country: CA (occurrence: CA)
  Receive Date: 20120910
  Receipt Date: 20120910
  Transmission Date: 20130627
  Serious: Yes (Other)
  Sender: FDA-Public Use
  Company Number: CA-JNJFOC-20120900148

PATIENT
  Age: 75 Year
  Sex: Female
  Weight: 24.95 kg

DRUGS (2)
  1. NICORETTE FRESH MINT [Suspect]
     Indication: NICOTINE DEPENDENCE
     Route: 048
  2. UNKNOWN MEDICATION [Concomitant]
     Route: 065

REACTIONS (5)
  - Nicotine dependence [Not Recovered/Not Resolved]
  - Intentional drug misuse [Unknown]
  - Expired drug administered [Unknown]
  - Product formulation issue [Unknown]
  - Product adhesion issue [None]
